FAERS Safety Report 8352413-3 (Version None)
Quarter: 2012Q2

REPORT INFORMATION
  Report Type: 
  Country: None (occurrence: None)
  Receive Date: 20120511
  Receipt Date: 20120502
  Transmission Date: 20120825
  Serious: Yes (Hospitalization)
  Sender: FDA-Public Use
  Company Number: US-VERTEX PHARMACEUTICALS INC.-AE-2012-006412

PATIENT
  Sex: Female
  Weight: 64.922 kg

DRUGS (3)
  1. INCIVEK [Suspect]
     Indication: HEPATITIS C
     Route: 048
     Dates: start: 20120410
  2. RIBASPHERE [Concomitant]
     Indication: HEPATITIS C
     Route: 048
     Dates: start: 20120410
  3. PEGASYS [Concomitant]
     Indication: HEPATITIS C
     Route: 058
     Dates: start: 20120410

REACTIONS (4)
  - DRUG DOSE OMISSION [None]
  - URINARY TRACT INFECTION [None]
  - LETHARGY [None]
  - ASTHENIA [None]
